FAERS Safety Report 21238645 (Version 2)
Quarter: 2022Q4

REPORT INFORMATION
  Report Type: Report from Study
  Country: FR (occurrence: None)
  Receive Date: 20220822
  Receipt Date: 20221017
  Transmission Date: 20230112
  Serious: Yes (Death, Hospitalization)
  Sender: FDA-Public Use
  Company Number: FR-ROCHE-3159677

PATIENT
  Age: 78 Year
  Sex: Male

DRUGS (10)
  1. ATEZOLIZUMAB [Suspect]
     Active Substance: ATEZOLIZUMAB
     Indication: Non-small cell lung cancer
     Dosage: DATE OF LAST ADMINISTRATION: 03/AUG/2022
     Route: 065
     Dates: start: 20220713
  2. METFORMIN [Concomitant]
     Active Substance: METFORMIN HYDROCHLORIDE
  3. GLICLAZIDE [Concomitant]
     Active Substance: GLICLAZIDE
  4. DAPAGLIFLOZIN [Concomitant]
     Active Substance: DAPAGLIFLOZIN
  5. ENALAPRIL MALEATE\LERCANIDIPINE HYDROCHLORIDE [Concomitant]
     Active Substance: ENALAPRIL MALEATE\LERCANIDIPINE HYDROCHLORIDE
     Dosage: 20 MG/10MG
  6. ATORVASTATIN [Concomitant]
     Active Substance: ATORVASTATIN
  7. FUROSEMIDE [Concomitant]
     Active Substance: FUROSEMIDE
  8. XARELTO [Concomitant]
     Active Substance: RIVAROXABAN
  9. SOTALOL [Concomitant]
     Active Substance: SOTALOL
  10. ALLOPURINOL [Concomitant]
     Active Substance: ALLOPURINOL

REACTIONS (2)
  - Back pain [Not Recovered/Not Resolved]
  - Encephalopathy [Fatal]

NARRATIVE: CASE EVENT DATE: 20220803
